FAERS Safety Report 10215579 (Version 1)
Quarter: 2014Q2

REPORT INFORMATION
  Report Type: Spontaneous
  Country: CN (occurrence: CN)
  Receive Date: 20140604
  Receipt Date: 20140604
  Transmission Date: 20141212
  Serious: Yes (Other)
  Sender: FDA-Public Use
  Company Number: CN-ROCHE-1409946

PATIENT
  Age: 27 Year
  Sex: Female
  Weight: 72 kg

DRUGS (1)
  1. ROCEPHIN [Suspect]
     Indication: PREMATURE RUPTURE OF MEMBRANES
     Route: 041
     Dates: start: 20130823, end: 20130823

REACTIONS (3)
  - Maternal exposure during delivery [Recovered/Resolved]
  - Chest discomfort [Recovered/Resolved]
  - Dyspnoea [Recovered/Resolved]
